FAERS Safety Report 5646646-4 (Version None)
Quarter: 2008Q1

REPORT INFORMATION
  Report Type: 
  Country: None (occurrence: None)
  Receive Date: 20080303
  Receipt Date: 20080303
  Transmission Date: 20080703
  Serious: Yes (Life-Threatening, Hospitalization)
  Sender: FDA-Public Use
  Company Number: None

PATIENT
  Age: 59 Year
  Sex: Male
  Weight: 78.9259 kg

DRUGS (4)
  1. HEPARIN [Suspect]
     Indication: CATHETERISATION CARDIAC
     Dates: start: 20050815, end: 20050815
  2. HEPARIN [Suspect]
     Indication: VASCULAR GRAFT
     Dates: start: 20050815, end: 20050815
  3. HEPARIN [Suspect]
     Indication: CATHETERISATION CARDIAC
     Dates: start: 20050819, end: 20050819
  4. HEPARIN [Suspect]
     Indication: VASCULAR GRAFT
     Dates: start: 20050819, end: 20050819

REACTIONS (6)
  - BLOOD PRESSURE DECREASED [None]
  - DRUG HYPERSENSITIVITY [None]
  - DYSPNOEA [None]
  - PHARMACEUTICAL PRODUCT COMPLAINT [None]
  - POOR QUALITY DRUG ADMINISTERED [None]
  - THROMBOSIS [None]
